FAERS Safety Report 14979705 (Version 2)
Quarter: 2018Q3

REPORT INFORMATION
  Report Type: Spontaneous
  Country: GB (occurrence: GB)
  Receive Date: 20180606
  Receipt Date: 20180720
  Transmission Date: 20181010
  Serious: Yes (Life-Threatening, Hospitalization)
  Sender: FDA-Public Use
  Company Number: PHHY2018GB015599

PATIENT
  Age: 65 Year
  Sex: Male
  Weight: 71.66 kg

DRUGS (2)
  1. SIMBRINZA [Suspect]
     Active Substance: BRIMONIDINE TARTRATE\BRINZOLAMIDE
     Indication: ANGLE CLOSURE GLAUCOMA
     Dosage: 2 GTT, QD
     Route: 047
     Dates: start: 20180101
  2. MONOPOST [Suspect]
     Active Substance: LATANOPROST
     Indication: ANGLE CLOSURE GLAUCOMA
     Dosage: 1 DF, QD (BOTH EYES)
     Route: 047
     Dates: start: 20180101

REACTIONS (6)
  - Stress [Not Recovered/Not Resolved]
  - Vision blurred [Not Recovered/Not Resolved]
  - Eye pain [Not Recovered/Not Resolved]
  - Angina pectoris [Not Recovered/Not Resolved]
  - Aggression [Not Recovered/Not Resolved]
  - Visual impairment [Not Recovered/Not Resolved]

NARRATIVE: CASE EVENT DATE: 20180101
